FAERS Safety Report 7304509-2 (Version None)
Quarter: 2011Q1

REPORT INFORMATION
  Report Type: 
  Country: None (occurrence: None)
  Receive Date: 20110221
  Receipt Date: 20110203
  Transmission Date: 20110831
  Serious: Yes (Death, Other)
  Sender: FDA-Public Use
  Company Number: BE-AMGEN-BELSP2011007659

PATIENT
  Age: 70 Year
  Sex: Male

DRUGS (8)
  1. MEDROL [Concomitant]
     Dosage: 4 MG, UNK
  2. TRANSTEC [Concomitant]
     Dosage: 35 UG, UNK
  3. ADALAT [Concomitant]
     Dosage: 30 MG, UNK
  4. CIMETIDINE [Concomitant]
     Dosage: UNK
  5. D-CURE [Concomitant]
     Dosage: UNK
  6. ENBREL [Suspect]
     Indication: RHEUMATOID ARTHRITIS
     Dosage: 50 MG, WEEKLY
     Route: 058
     Dates: start: 20060101
  7. GLURENORM [Concomitant]
     Dosage: UNK
  8. DAFALGAN CODEINE [Concomitant]
     Dosage: UNK

REACTIONS (4)
  - DISSEMINATED INTRAVASCULAR COAGULATION [None]
  - SEPTIC SHOCK [None]
  - RENAL FAILURE ACUTE [None]
  - ATRIOVENTRICULAR BLOCK COMPLETE [None]
